FAERS Safety Report 10540845 (Version 1)
Quarter: 2014Q4

REPORT INFORMATION
  Report Type: Spontaneous
  Country: US (occurrence: None)
  Receive Date: 20141023
  Receipt Date: 20141023
  Transmission Date: 20150529
  Serious: Yes (Other)
  Sender: FDA-Public Use
  Company Number: None

PATIENT
  Age: 66 Year
  Weight: 99.79 kg

DRUGS (1)
  1. CLOTRIMAZOLE TROCHE [Suspect]
     Active Substance: CLOTRIMAZOLE
     Indication: ORAL FUNGAL INFECTION
     Dosage: 1 TAB 5 TIMES PER DAY TAKEN BY MOUTH
     Route: 048
     Dates: start: 20141020

REACTIONS (1)
  - Blood glucose abnormal [None]

NARRATIVE: CASE EVENT DATE: 20141021
